FAERS Safety Report 24573027 (Version 1)
Quarter: 2024Q4

REPORT INFORMATION
  Report Type: Spontaneous
  Country: ZA (occurrence: ZA)
  Receive Date: 20241101
  Receipt Date: 20241101
  Transmission Date: 20250114
  Serious: Yes (Other)
  Sender: TEVA
  Company Number: ZA-TEVA-VS-3257629

PATIENT
  Age: 53 Year
  Sex: Female

DRUGS (3)
  1. AZATHIOPRINE [Suspect]
     Active Substance: AZATHIOPRINE
     Indication: Product used for unknown indication
     Route: 065
  2. METHOTREXATE [Suspect]
     Active Substance: METHOTREXATE
     Indication: Product used for unknown indication
     Route: 065
  3. CHLOROQUINE [Suspect]
     Active Substance: CHLOROQUINE
     Indication: Product used for unknown indication
     Route: 065

REACTIONS (21)
  - Blood test abnormal [Unknown]
  - Red blood cell count decreased [Unknown]
  - Haematocrit decreased [Unknown]
  - Mean cell volume increased [Unknown]
  - Platelet count decreased [Unknown]
  - Neutrophil count decreased [Unknown]
  - White blood cell count decreased [Unknown]
  - Monocyte percentage increased [Unknown]
  - Basophil count decreased [Unknown]
  - Carbon dioxide decreased [Unknown]
  - Neutrophil percentage decreased [Unknown]
  - Blood thyroid stimulating hormone increased [Unknown]
  - Blood chloride increased [Unknown]
  - Blood urea increased [Unknown]
  - Globulins increased [Unknown]
  - Alanine aminotransferase increased [Unknown]
  - Aspartate aminotransferase increased [Unknown]
  - Low density lipoprotein increased [Unknown]
  - C-reactive protein increased [Unknown]
  - Haemoglobin decreased [Unknown]
  - Lymphocyte percentage increased [Unknown]
